FAERS Safety Report 7399525-9 (Version None)
Quarter: 2011Q2

REPORT INFORMATION
  Report Type: 
  Country: None (occurrence: None)
  Receive Date: 20110407
  Receipt Date: 20110328
  Transmission Date: 20111010
  Serious: Yes (Hospitalization, Other)
  Sender: FDA-Public Use
  Company Number: US-ELI_LILLY_AND_COMPANY-US201104000448

PATIENT
  Sex: Female

DRUGS (1)
  1. FORTEO [Suspect]
     Dosage: 20 UG, UNK
     Dates: start: 20100301

REACTIONS (5)
  - ASTHENIA [None]
  - MYOCARDIAL INFARCTION [None]
  - ANAEMIA [None]
  - HYPOPHAGIA [None]
  - HYPOTENSION [None]
